FAERS Safety Report 5025573-X (Version None)
Quarter: 2006Q2

REPORT INFORMATION
  Report Type: 
  Country: None (occurrence: None)
  Receive Date: 20060426
  Receipt Date: 20060209
  Transmission Date: 20061013
  Serious: Yes (Other)
  Sender: FDA-Public Use
  Company Number: 2006020786

PATIENT
  Age: 71 Year
  Sex: Male
  Weight: 92.9874 kg

DRUGS (3)
  1. LYRICA [Suspect]
     Indication: PERIPHERAL COLDNESS
     Dosage: 100 MG (50 MG,2 IN 1D),ORAL
     Route: 048
     Dates: start: 20051201
  2. LIPITOR [Concomitant]
  3. HYTRIN [Concomitant]

REACTIONS (1)
  - DRUG INEFFECTIVE [None]
